FAERS Safety Report 8588634-4 (Version None)
Quarter: 2012Q3

REPORT INFORMATION
  Report Type: 
  Country: None (occurrence: None)
  Receive Date: 20120813
  Receipt Date: 20120807
  Transmission Date: 20120928
  Serious: Yes (Hospitalization)
  Sender: FDA-Public Use
  Company Number: PHHY2012FR069206

PATIENT
  Sex: Male

DRUGS (4)
  1. VOLTAREN [Suspect]
     Indication: PAIN IN EXTREMITY
  2. CLINDAMYCIN HCL [Suspect]
     Dosage: UNK UKN, UNK
     Dates: start: 20120708
  3. AUGMENTIN ES-600 [Suspect]
     Dosage: UNK UKN, UNK
     Dates: start: 20120704, end: 20120708
  4. VOLTAREN [Suspect]
     Indication: ERYTHEMA
     Dosage: UNK UKN, UNK
     Route: 048
     Dates: start: 20120702, end: 20120704

REACTIONS (5)
  - RASH MACULO-PAPULAR [None]
  - PYREXIA [None]
  - ERYTHEMA [None]
  - ERYSIPELAS [None]
  - TOXIC SKIN ERUPTION [None]
